FAERS Safety Report 16908718 (Version 3)
Quarter: 2019Q4

REPORT INFORMATION
  Report Type: Spontaneous
  Country: FR (occurrence: FR)
  Receive Date: 20191011
  Receipt Date: 20191101
  Transmission Date: 20200122
  Serious: Yes (Hospitalization, Other)
  Sender: FDA-Public Use
  Company Number: FR-PFIZER INC-2019435876

PATIENT
  Age: 29 Year
  Sex: Female
  Weight: 89 kg

DRUGS (1)
  1. PROSTINE E2 [Suspect]
     Active Substance: DINOPROSTONE
     Indication: LABOUR INDUCTION
     Dosage: 2 MG, SINGLE
     Route: 067
     Dates: start: 201910, end: 201910

REACTIONS (4)
  - Product complaint [Unknown]
  - Complication of delivery [Recovered/Resolved]
  - Uterine hypertonus [Unknown]
  - Caesarean section [Recovered/Resolved]

NARRATIVE: CASE EVENT DATE: 201910
